FAERS Safety Report 7486624-6 (Version None)
Quarter: 2011Q2

REPORT INFORMATION
  Report Type: 
  Country: None (occurrence: None)
  Receive Date: 20110517
  Receipt Date: 20100621
  Transmission Date: 20111010
  Serious: No
  Sender: FDA-Public Use
  Company Number: US-NOVEN-ALL1-2010-03532

PATIENT

DRUGS (3)
  1. ZOLOFT [Concomitant]
     Dosage: UNK MG, 1X/DAY:QD
     Route: 048
     Dates: start: 20070101
  2. DAYTRANA [Suspect]
     Dosage: 30 MG, 2X/DAY:BID
     Route: 062
     Dates: start: 20090101
  3. DAYTRANA [Suspect]
     Dosage: 30 MG, 2X/DAY:BID
     Route: 062
     Dates: start: 20090101

REACTIONS (7)
  - OVERDOSE [None]
  - PERSONALITY CHANGE [None]
  - DRUG EFFECT DECREASED [None]
  - INCORRECT DRUG ADMINISTRATION DURATION [None]
  - WRONG TECHNIQUE IN DRUG USAGE PROCESS [None]
  - INAPPROPRIATE SCHEDULE OF DRUG ADMINISTRATION [None]
  - PRODUCT QUALITY ISSUE [None]
